FAERS Safety Report 5059261-0 (Version None)
Quarter: 2006Q2

REPORT INFORMATION
  Report Type: 
  Country: None (occurrence: None)
  Receive Date: 20060629
  Receipt Date: 20060410
  Transmission Date: 20061013
  Serious: No
  Sender: FDA-Public Use
  Company Number: PHEH2006US03284

PATIENT
  Age: 65 Year
  Sex: Female

DRUGS (2)
  1. ENABLEX [Suspect]
     Indication: HYPERTONIC BLADDER
     Dates: start: 20060309
  2. FEXOFENADINE HCL [Suspect]

REACTIONS (3)
  - FATIGUE [None]
  - HEADACHE [None]
  - HYPOAESTHESIA [None]
